FAERS Safety Report 23201043 (Version 2)
Quarter: 2023Q4

REPORT INFORMATION
  Report Type: Report from Study
  Country: US (occurrence: US)
  Receive Date: 20231118
  Receipt Date: 20231220
  Transmission Date: 20240110
  Serious: No
  Sender: FDA-Public Use
  Company Number: US-002147023-NVSC2023US245704

PATIENT
  Sex: Female

DRUGS (1)
  1. PIQRAY [Suspect]
     Active Substance: ALPELISIB
     Indication: Product used for unknown indication
     Dosage: UNK
     Route: 065

REACTIONS (6)
  - Taste disorder [Recovered/Resolved with Sequelae]
  - Burning sensation [Unknown]
  - Liver function test increased [Unknown]
  - Hyperglycaemia [Unknown]
  - Nausea [Unknown]
  - Fatigue [Unknown]
